FAERS Safety Report 23830037 (Version 1)
Quarter: 2024Q2

REPORT INFORMATION
  Report Type: Spontaneous
  Country: SD (occurrence: None)
  Receive Date: 20240508
  Receipt Date: 20240508
  Transmission Date: 20240716
  Serious: Yes (Hospitalization, Other)
  Sender: FDA-Public Use
  Company Number: SD-Unichem Pharmaceuticals (USA) Inc-UCM202405-000465

PATIENT
  Age: 28 Year
  Sex: Male

DRUGS (4)
  1. ARIPIPRAZOLE [Suspect]
     Active Substance: ARIPIPRAZOLE
     Indication: Schizoaffective disorder
  2. DEPAKOTE [Concomitant]
     Active Substance: DIVALPROEX SODIUM
     Indication: Schizoaffective disorder
  3. DEPAKOTE [Concomitant]
     Active Substance: DIVALPROEX SODIUM
  4. DIAZEPAM [Concomitant]
     Active Substance: DIAZEPAM
     Indication: Schizoaffective disorder

REACTIONS (2)
  - Blood creatine phosphokinase increased [Unknown]
  - Product use issue [Unknown]
